FAERS Safety Report 9169155 (Version 3)
Quarter: 2013Q2

REPORT INFORMATION
  Report Type: Spontaneous
  Country: US (occurrence: US)
  Receive Date: 20130318
  Receipt Date: 20130424
  Transmission Date: 20140414
  Serious: Yes (Hospitalization)
  Sender: FDA-Public Use
  Company Number: US-B.I. PHARMACEUTICALS,INC./RIDGEFIELD-2013-BI-06653BP

PATIENT
  Age: 80 Year
  Sex: Male
  Weight: 131.54 kg

DRUGS (6)
  1. PRADAXA [Suspect]
     Indication: ATRIAL FIBRILLATION
     Dates: start: 20101110, end: 20110121
  2. NASONEX [Concomitant]
  3. RAMIPRIL [Concomitant]
  4. ACTOPLUS [Concomitant]
  5. TOPROL [Concomitant]
  6. AMIODARONE [Concomitant]

REACTIONS (1)
  - Gastrointestinal haemorrhage [Unknown]
